FAERS Safety Report 11938391 (Version 2)
Quarter: 2016Q1

REPORT INFORMATION
  Report Type: Report from Study
  Country: US (occurrence: US)
  Receive Date: 20160122
  Receipt Date: 20160212
  Transmission Date: 20160526
  Serious: No
  Sender: FDA-Public Use
  Company Number: US-AMGEN-USASL2016005177

PATIENT
  Age: 89 Year
  Sex: Female

DRUGS (1)
  1. PROLIA [Suspect]
     Active Substance: DENOSUMAB
     Indication: PRODUCT USED FOR UNKNOWN INDICATION
     Dosage: UNK
     Route: 065

REACTIONS (9)
  - Pain in extremity [Unknown]
  - Gait disturbance [Unknown]
  - Swelling [Unknown]
  - Dehydration [Unknown]
  - Syncope [Unknown]
  - Vasodilatation [Unknown]
  - Unevaluable event [Unknown]
  - White blood cell count abnormal [Unknown]
  - Fall [Unknown]
